FAERS Safety Report 6089120-6 (Version None)
Quarter: 2009Q1

REPORT INFORMATION
  Report Type: 
  Country: None (occurrence: None)
  Receive Date: 20090224
  Receipt Date: 20090212
  Transmission Date: 20090719
  Serious: Yes (Hospitalization)
  Sender: FDA-Public Use
  Company Number: US-ELI_LILLY_AND_COMPANY-US200810003441

PATIENT
  Sex: Female

DRUGS (19)
  1. CYMBALTA [Suspect]
     Indication: DIABETIC NEUROPATHY
     Dosage: 90 MG, UNK
     Dates: start: 20080801
  2. NEXIUM [Concomitant]
     Dosage: 40 MG, 2/D
  3. METOPROLOL [Concomitant]
     Dosage: 12.5 MG, 2/D
  4. ERYTHROMYCIN [Concomitant]
     Dosage: 250 MG, 2/D
  5. ZETIA [Concomitant]
     Dosage: 10 MG, DAILY (1/D)
  6. DURAGESIC-100 [Concomitant]
     Indication: PAIN
     Dosage: UNK, 2/W
     Route: 061
  7. MULTI-VITAMIN [Concomitant]
     Dosage: UNK, DAILY (1/D)
  8. REQUIP [Concomitant]
  9. WARFARIN SODIUM [Concomitant]
  10. AVALIDE [Concomitant]
     Dosage: UNK, DAILY (1/D)
  11. BUMEX [Concomitant]
     Dosage: 1 MG, DAILY (1/D)
  12. DEPO-PROVERA [Concomitant]
     Dosage: 150 MG, UNK
  13. KEPPRA [Concomitant]
     Dosage: 500 MG, 2/D
  14. PHENERGAN [Concomitant]
     Dosage: 25 MG, AS NEEDED
  15. POTASSIUM CHLORIDE [Concomitant]
     Dosage: 10 MEQ, DAILY (1/D)
  16. TIMOPTIC [Concomitant]
     Dosage: UNK, 2/D
     Route: 047
  17. TRAVATAN [Concomitant]
     Dosage: UNK, DAILY (1/D)
     Route: 047
  18. NOVOLOG [Concomitant]
  19. PERCOCET [Concomitant]
     Dosage: UNK, AS NEEDED

REACTIONS (3)
  - DIABETIC GASTROPARESIS [None]
  - TACHYCARDIA [None]
  - VOMITING [None]
